FAERS Safety Report 23362914 (Version 1)
Quarter: 2024Q1

REPORT INFORMATION
  Report Type: Spontaneous
  Country: US (occurrence: None)
  Receive Date: 20240103
  Receipt Date: 20240103
  Transmission Date: 20240409
  Serious: No
  Sender: FDA-Public Use
  Company Number: None

PATIENT
  Sex: Female

DRUGS (1)
  1. OTEZLA [Suspect]
     Active Substance: APREMILAST
     Indication: Arthropathy
     Dosage: 30MG BID PO?
     Route: 048
     Dates: start: 202302

REACTIONS (4)
  - Pruritus [None]
  - Swelling [None]
  - Burning sensation [None]
  - Erythema [None]
